FAERS Safety Report 10555944 (Version 3)
Quarter: 2014Q4

REPORT INFORMATION
  Report Type: Spontaneous
  Country: JP (occurrence: JP)
  Receive Date: 20141030
  Receipt Date: 20141112
  Transmission Date: 20150529
  Serious: Yes (Hospitalization, Other)
  Sender: FDA-Public Use
  Company Number: PHHY2014JP136781

PATIENT
  Age: 12 Year
  Sex: Male

DRUGS (4)
  1. FRUCTOSE [Concomitant]
     Active Substance: FRUCTOSE
     Indication: PRODUCT USED FOR UNKNOWN INDICATION
     Route: 041
  2. CARBOPLATIN SANDOZ [Suspect]
     Active Substance: CARBOPLATIN
     Indication: INTRACRANIAL GERM CELL TUMOUR
     Dosage: 600 MG, QD
     Route: 042
     Dates: start: 20120213
  3. GLYCERIN. [Concomitant]
     Active Substance: GLYCERIN
     Indication: PRODUCT USED FOR UNKNOWN INDICATION
     Route: 041
  4. ETOPOSIDE SANDOZ [Suspect]
     Active Substance: ETOPOSIDE
     Indication: INTRACRANIAL GERM CELL TUMOUR
     Dosage: 200 MG, QD
     Route: 042
     Dates: start: 20120213

REACTIONS (8)
  - Malignant neoplasm progression [Unknown]
  - Hemianopia homonymous [Unknown]
  - Visual field defect [Recovered/Resolved]
  - Mydriasis [Unknown]
  - Brain teratoma [Unknown]
  - Intracranial germ cell tumour [Unknown]
  - Parinaud syndrome [Unknown]
  - Visual impairment [Recovered/Resolved]
